FAERS Safety Report 17352043 (Version 2)
Quarter: 2020Q1

REPORT INFORMATION
  Report Type: Spontaneous
  Country: US (occurrence: US)
  Receive Date: 20200130
  Receipt Date: 20200317
  Transmission Date: 20200409
  Serious: Yes (Hospitalization, Other)
  Sender: FDA-Public Use
  Company Number: US-PFM-2020-01053

PATIENT
  Sex: Male
  Weight: 12.7 kg

DRUGS (1)
  1. HEMANGEOL [Suspect]
     Active Substance: PROPRANOLOL HYDROCHLORIDE
     Indication: INFANTILE HAEMANGIOMA
     Dosage: 3.3 ML, BID (2/DAY) WITH FOOD
     Route: 048
     Dates: start: 20191120

REACTIONS (2)
  - Pneumonia [Recovered/Resolved]
  - Respiratory syncytial virus bronchitis [Recovered/Resolved]
